FAERS Safety Report 23602768 (Version 2)
Quarter: 2024Q2

REPORT INFORMATION
  Report Type: Spontaneous
  Country: US (occurrence: US)
  Receive Date: 20240306
  Receipt Date: 20240605
  Transmission Date: 20240716
  Serious: Yes (Other)
  Sender: FDA-Public Use
  Company Number: US-BRISTOL-MYERS SQUIBB COMPANY-2024-034589

PATIENT
  Age: 71 Year
  Sex: Male

DRUGS (1)
  1. BREYANZI [Suspect]
     Active Substance: LISOCABTAGENE MARALEUCEL
     Indication: Product used for unknown indication
     Route: 042
     Dates: start: 20230515

REACTIONS (6)
  - Hallucination [Unknown]
  - Hypotension [Unknown]
  - Agitation [Unknown]
  - Fatigue [Unknown]
  - Influenza like illness [Recovered/Resolved]
  - Pyrexia [Unknown]
